FAERS Safety Report 24238432 (Version 1)
Quarter: 2024Q3

REPORT INFORMATION
  Report Type: Spontaneous
  Country: CA (occurrence: CA)
  Receive Date: 20240822
  Receipt Date: 20240822
  Transmission Date: 20241017
  Serious: Yes (Life-Threatening)
  Sender: MYLAN
  Company Number: CA-MYLANLABS-2024M1077665

PATIENT
  Age: 50 Year
  Sex: Male
  Weight: 81 kg

DRUGS (5)
  1. PREGABALIN [Suspect]
     Active Substance: PREGABALIN
     Indication: Pain management
     Dosage: UNK, QD (1 EVERY 1 DAYS)
     Route: 048
  2. PREGABALIN [Suspect]
     Active Substance: PREGABALIN
     Indication: Neck pain
  3. PREGABALIN [Suspect]
     Active Substance: PREGABALIN
     Indication: Headache
  4. NAPROXEN [Concomitant]
     Active Substance: NAPROXEN
     Dosage: UNK
     Route: 065
  5. VITAMIN D [Concomitant]
     Active Substance: VITAMIN D NOS
     Dosage: UNK
     Route: 065

REACTIONS (4)
  - Feeling of despair [Unknown]
  - Psychotic disorder [Unknown]
  - Suicidal ideation [Unknown]
  - Suicide attempt [Unknown]
